FAERS Safety Report 9281848 (Version 2)
Quarter: 2013Q2

REPORT INFORMATION
  Report Type: Report from Study
  Country: BR (occurrence: BR)
  Receive Date: 20130510
  Receipt Date: 20130617
  Transmission Date: 20140414
  Serious: Yes (Hospitalization, Other)
  Sender: FDA-Public Use
  Company Number: BR-ROCHE-1112419

PATIENT
  Age: 69 Year
  Sex: Male
  Weight: 78 kg

DRUGS (2)
  1. ACTEMRA [Suspect]
     Indication: RHEUMATOID ARTHRITIS
     Route: 065
     Dates: start: 20120815
  2. INFLIXIMAB [Suspect]
     Indication: PRODUCT USED FOR UNKNOWN INDICATION
     Route: 065

REACTIONS (9)
  - Anaemia [Unknown]
  - White blood cell count decreased [Not Recovered/Not Resolved]
  - Asthenia [Not Recovered/Not Resolved]
  - Anaemia [Recovered/Resolved]
  - Pleural effusion [Recovered/Resolved]
  - Interleukin level increased [Unknown]
  - Drug ineffective [Unknown]
  - Neuropathy peripheral [Unknown]
  - Polyarthritis [Unknown]
